FAERS Safety Report 8582889 (Version 3)
Quarter: 2013Q2

REPORT INFORMATION
  Report Type: Spontaneous
  Country: CA (occurrence: CA)
  Receive Date: 20120529
  Receipt Date: 20130618
  Transmission Date: 20140414
  Serious: Yes (Other)
  Sender: FDA-Public Use
  Company Number: CA-JNJFOC-20120515385

PATIENT
  Age: 29 Year
  Sex: Male
  Weight: 82.7 kg

DRUGS (5)
  1. REMICADE [Suspect]
     Indication: CROHN^S DISEASE
     Route: 042
     Dates: start: 20050503
  2. IMURAN [Concomitant]
     Route: 048
  3. FLAGYL [Concomitant]
     Route: 048
  4. ANTIBIOTICS [Concomitant]
     Route: 065
  5. CIPRO [Concomitant]
     Route: 065

REACTIONS (1)
  - Fistula [Unknown]
